FAERS Safety Report 9013491 (Version 1)
Quarter: 2013Q1

REPORT INFORMATION
  Report Type: Spontaneous
  Country: US (occurrence: None)
  Receive Date: 20130107
  Receipt Date: 20130107
  Transmission Date: 20140127
  Serious: Yes (Hospitalization)
  Sender: FDA-Public Use
  Company Number: None

PATIENT
  Age: 85 Year
  Sex: Male

DRUGS (2)
  1. CEFUROXIME [Suspect]
     Indication: URINARY TRACT INFECTION
     Dosage: 500 MG BID PO
     Route: 048
     Dates: start: 20120917, end: 20120923
  2. CEFTRIAXONE [Suspect]
     Dosage: 1 GM EVERY DAY IV
     Route: 042
     Dates: start: 20120916, end: 20120916

REACTIONS (3)
  - Dehydration [None]
  - Clostridium difficile infection [None]
  - Diarrhoea [None]
